FAERS Safety Report 13192472 (Version 1)
Quarter: 2017Q1

REPORT INFORMATION
  Report Type: Spontaneous
  Country: US (occurrence: US)
  Receive Date: 20161207
  Receipt Date: 20161207
  Transmission Date: 20170428
  Serious: Yes (Hospitalization, Other)
  Sender: FDA-Public Use
  Company Number: None

PATIENT
  Age: 24 Year
  Sex: Male
  Weight: 78.4 kg

DRUGS (5)
  1. IPILIMUMAB [Suspect]
     Active Substance: IPILIMUMAB
     Dosage: 1 MG/KG Q21D INTRAVENOUS
     Route: 042
     Dates: start: 20161102
  2. 1E9 CELLS [Concomitant]
  3. ALDESLEUKIN [Suspect]
     Active Substance: ALDESLEUKIN
     Indication: METASTATIC MALIGNANT MELANOMA
     Dosage: 500,000 UNITS/M2 Q12H SUBCUTANEOUS
     Route: 058
     Dates: start: 20161103, end: 20161108
  4. PEPTIDE PULSED DC VACCINE [Concomitant]
  5. NY-ESO-1 TCR TRANSGENIC T CELLS [Concomitant]

REACTIONS (11)
  - Tachycardia [None]
  - Pyrexia [None]
  - Autoimmune hepatitis [None]
  - Diastolic hypotension [None]
  - Lethargy [None]
  - Hepatotoxicity [None]
  - Hepatic ischaemia [None]
  - Vision blurred [None]
  - Rash maculo-papular [None]
  - Hepatomegaly [None]
  - Drug-induced liver injury [None]

NARRATIVE: CASE EVENT DATE: 20161126
